FAERS Safety Report 8923198 (Version 1)
Quarter: 2012Q4

REPORT INFORMATION
  Report Type: 
  Country: SE (occurrence: SE)
  Receive Date: 20121123
  Receipt Date: 20121123
  Transmission Date: 20130627
  Serious: Yes (Hospitalization, Other)
  Sender: FDA-Public Use
  Company Number: SE-PFIZER INC-2012288307

PATIENT
  Age: 85 Year
  Sex: Female
  Weight: 81.2 kg

DRUGS (10)
  1. GENOTROPIN [Suspect]
     Dosage: 0.4 mg, 1x/day,7 injections/week
     Route: 058
     Dates: start: 19960919
  2. LEVOTHYROXINE [Concomitant]
     Indication: TSH DECREASED
     Dosage: UNK
     Dates: start: 19741001
  3. LEVOTHYROXINE [Concomitant]
     Indication: PRIMARY HYPOTHYROIDISM
  4. OVESTERIN [Concomitant]
     Indication: LUTEINIZING HORMONE DEFICIENCY
     Dosage: UNK
     Dates: start: 19910601
  5. OVESTERIN [Concomitant]
     Indication: FOLLICLE-STIMULATING HORMONE DEFICIENCY
  6. OVESTERIN [Concomitant]
     Indication: OVARIAN DISORDER
  7. OVESTERIN [Concomitant]
     Indication: HYPOGONADISM
  8. ACETYLSALICYLIC ACID [Concomitant]
     Indication: VASCULAR DISORDER
     Dosage: UNK
     Dates: start: 19940601
  9. LUNELAX [Concomitant]
     Indication: OBESITY
     Dosage: UNK
     Dates: start: 19960101
  10. CALCIUM WITH VITAMIN D [Concomitant]
     Indication: OSTEOPOROSIS
     Dosage: UNK
     Dates: start: 20000308

REACTIONS (2)
  - Rib fracture [Unknown]
  - Fall [Unknown]
